FAERS Safety Report 7476743-2 (Version None)
Quarter: 2011Q2

REPORT INFORMATION
  Report Type: 
  Country: None (occurrence: None)
  Receive Date: 20110512
  Receipt Date: 20110506
  Transmission Date: 20111010
  Serious: Yes (Other)
  Sender: FDA-Public Use
  Company Number: US-EISAI INC-E2020-09118-SPO-US

PATIENT
  Sex: Male
  Weight: 65.76 kg

DRUGS (8)
  1. LIPITOR [Suspect]
     Dosage: UNKNOWN
     Route: 048
  2. LIPITOR [Suspect]
     Route: 048
  3. ARICEPT [Suspect]
     Route: 048
     Dates: start: 20110101, end: 20110401
  4. FISH OIL [Concomitant]
  5. CALCIUM WITH VITAMIN D [Concomitant]
  6. ARICEPT [Suspect]
     Indication: DEMENTIA
     Route: 048
     Dates: start: 20070101, end: 20110101
  7. ARICEPT [Suspect]
     Route: 048
     Dates: start: 20110401
  8. NAMENDA [Concomitant]
     Indication: DEMENTIA
     Route: 048

REACTIONS (2)
  - DYSPHAGIA [None]
  - DEMENTIA [None]
